FAERS Safety Report 4452500-6 (Version None)
Quarter: 2004Q3

REPORT INFORMATION
  Report Type: 
  Country: None (occurrence: None)
  Receive Date: 20040916
  Receipt Date: 20040903
  Transmission Date: 20050211
  Serious: Yes (Other)
  Sender: FDA-Public Use
  Company Number: 2004063990

PATIENT
  Age: 65 Year
  Sex: Female
  Weight: 79.4 kg

DRUGS (19)
  1. ATORVASTATIN (ATORVASTATIN) [Suspect]
     Indication: BLOOD CHOLESTEROL
     Dosage: 10 MG (10 MG, 1 IN 1 D), ORAL
     Route: 048
     Dates: start: 20040709, end: 20040712
  2. RISEDRONATE SODIUM (RISEDRONATE SODIUM) [Concomitant]
  3. MONTELUKAST (MONTELUKAST) [Concomitant]
  4. LEVOCETIRIZINE (LEVOCETIRIZINE) [Concomitant]
  5. LIDOCAINE [Concomitant]
  6. APOREX (DEXTROPROPOXYPHENE HYDROCHLORIDE, PARACETAMOL) [Concomitant]
  7. FRUMIL (AMILORIDE HYDROCHLORIDE, FUROSEMIDE) [Concomitant]
  8. SALBUTAMOL (SALBUTAMOL) [Concomitant]
  9. FLUTICASONE PROPIONATE [Concomitant]
  10. OMEPRAZOLE [Concomitant]
  11. BETAMETHASONE [Concomitant]
  12. HEPARIN SODIUM [Concomitant]
  13. AMINOPHYLLIN [Concomitant]
  14. POVIDONE IODINE [Concomitant]
  15. SALBUTAMOL (SALBUTAMOL) [Concomitant]
  16. BECLOMETHASONE DIPROPIONATE [Concomitant]
  17. MIGRALEVE (BUCLIZINE HYDROCHLORIDE, CODEINE PHOSPHATE, PARACETAMOL) [Concomitant]
  18. ACETAMINOPHEN [Concomitant]
  19. CETIRIZINE HCL [Concomitant]

REACTIONS (2)
  - ASTHMA [None]
  - CONDITION AGGRAVATED [None]
